FAERS Safety Report 7117259-2 (Version None)
Quarter: 2010Q4

REPORT INFORMATION
  Report Type: 
  Country: None (occurrence: None)
  Receive Date: 20101112
  Receipt Date: 20101101
  Transmission Date: 20110411
  Serious: Yes (Death)
  Sender: FDA-Public Use
  Company Number: 2010MA004098

PATIENT
  Age: 66 Year
  Sex: Female

DRUGS (6)
  1. OXYCODONE HCL [Suspect]
  2. DIAZEPAM [Suspect]
  3. NORDAZEPAM (NORDAZEPAM) [Suspect]
  4. ALCOHOL (ETHANOL) [Suspect]
  5. CON MEDS [Concomitant]
  6. PREV MEDS [Concomitant]

REACTIONS (1)
  - OVERDOSE [None]
